FAERS Safety Report 18243728 (Version 2)
Quarter: 2020Q4

REPORT INFORMATION
  Report Type: Spontaneous
  Country: TW (occurrence: TW)
  Receive Date: 20200908
  Receipt Date: 20201008
  Transmission Date: 20210113
  Serious: Yes (Hospitalization, Other)
  Sender: FDA-Public Use
  Company Number: TW-PFIZER INC-2020312070

PATIENT
  Age: 78 Year
  Sex: Female

DRUGS (1)
  1. XELJANZ XR [Suspect]
     Active Substance: TOFACITINIB CITRATE
     Indication: RHEUMATOID ARTHRITIS
     Dosage: 11 MG, CYCLIC (24 DF PER MONTH; SUNDAYS DRUG STOPPED AND NOT TAKEN)
     Route: 048

REACTIONS (7)
  - Cholecystitis [Unknown]
  - Pyrexia [Not Recovered/Not Resolved]
  - Off label use [Unknown]
  - Vomiting [Not Recovered/Not Resolved]
  - Bile duct stone [Unknown]
  - Abdominal pain [Not Recovered/Not Resolved]
  - Cholangitis [Recovering/Resolving]

NARRATIVE: CASE EVENT DATE: 202008
